FAERS Safety Report 13356174 (Version 1)
Quarter: 2017Q1

REPORT INFORMATION
  Report Type: Spontaneous
  Country: CN (occurrence: CN)
  Receive Date: 20170321
  Receipt Date: 20170321
  Transmission Date: 20170429
  Serious: Yes (Life-Threatening, Hospitalization, Other)
  Sender: FDA-Public Use
  Company Number: CN-BAYER-2017-053197

PATIENT
  Age: 82 Year
  Sex: Male

DRUGS (7)
  1. LEVOFLOXACIN. [Suspect]
     Active Substance: LEVOFLOXACIN
  2. MEROPENEM. [Concomitant]
     Active Substance: MEROPENEM
  3. AZITHROMYCIN ANHYDROUS. [Concomitant]
     Active Substance: AZITHROMYCIN ANHYDROUS
     Dosage: UNK
  4. CIPROFLOXACIN. [Suspect]
     Active Substance: CIPROFLOXACIN
     Indication: RESPIRATORY TRACT INFECTION
     Dosage: UNK
  5. PIPERACILLIN SODIUM W/TAZOBACTAM [Suspect]
     Active Substance: PIPERACILLIN SODIUM\TAZOBACTAM SODIUM
     Indication: RESPIRATORY TRACT INFECTION
  6. POTASSIUM CHLORIDE. [Suspect]
     Active Substance: POTASSIUM CHLORIDE
  7. LINEZOLID. [Concomitant]
     Active Substance: LINEZOLID
     Dosage: UNK

REACTIONS (9)
  - Multiple organ dysfunction syndrome [None]
  - Respiratory acidosis [None]
  - Metabolic alkalosis [None]
  - Cardiac arrest [Recovered/Resolved]
  - Coma [Not Recovered/Not Resolved]
  - Tracheo-oesophageal fistula [None]
  - Pathogen resistance [None]
  - Respiratory tract infection [None]
  - Shock [None]
